FAERS Safety Report 4616682-5 (Version None)
Quarter: 2005Q1

REPORT INFORMATION
  Report Type: 
  Country: None (occurrence: None)
  Receive Date: 20050318
  Receipt Date: 20050307
  Transmission Date: 20050727
  Serious: Yes (Death, Hospitalization)
  Sender: FDA-Public Use
  Company Number: CERZ-10802

PATIENT
  Age: 30 Year
  Sex: Male
  Weight: 52.3 kg

DRUGS (4)
  1. CEREZYME [Suspect]
     Indication: GAUCHER'S DISEASE
     Dosage: 6400 UNITS Q2WJS IV
     Route: 042
     Dates: start: 20010101, end: 20050212
  2. CEREZYME [Suspect]
     Indication: GAUCHER'S DISEASE
     Dosage: 3200 UNITS Q2WKS IV
     Route: 042
     Dates: start: 19970509, end: 20010101
  3. FOSAMAX [Concomitant]
  4. UNSPECIFIED VITAMIN SUPPEMENT [Concomitant]

REACTIONS (43)
  - ABDOMINAL COMPARTMENT SYNDROME [None]
  - ABDOMINAL HAEMATOMA [None]
  - ABDOMINAL PAIN [None]
  - ABDOMINAL PAIN LOWER [None]
  - ALKALOSIS [None]
  - ANAEMIA [None]
  - ANOREXIA [None]
  - BONE INFARCTION [None]
  - CALCINOSIS [None]
  - CHILLS [None]
  - DEEP VEIN THROMBOSIS [None]
  - DISSEMINATED INTRAVASCULAR COAGULATION [None]
  - DYSPNOEA [None]
  - FATIGUE [None]
  - GASTRIC ULCER HAEMORRHAGE [None]
  - HAEMATOCRIT DECREASED [None]
  - HEPATIC HAEMATOMA [None]
  - HEPATIC HAEMORRHAGE [None]
  - HEPATIC LESION [None]
  - HYPOTENSION [None]
  - HYPOVENTILATION [None]
  - HYPOXIA [None]
  - INFECTION [None]
  - INTRA-ABDOMINAL HAEMORRHAGE [None]
  - LUNG INFECTION PSEUDOMONAL [None]
  - LUNG NEOPLASM [None]
  - MALAISE [None]
  - MASS [None]
  - NAUSEA [None]
  - NECROSIS [None]
  - NIGHT SWEATS [None]
  - OXYGEN SATURATION DECREASED [None]
  - PANCREATITIS [None]
  - PNEUMONIA STAPHYLOCOCCAL [None]
  - PULMONARY EMBOLISM [None]
  - PYREXIA [None]
  - RENAL FAILURE [None]
  - SOFT TISSUE DISORDER [None]
  - SPINAL CORD COMPRESSION [None]
  - SPLENIC HAEMATOMA [None]
  - SPLENIC INFARCTION [None]
  - TACHYCARDIA [None]
  - VITREOUS DETACHMENT [None]
